FAERS Safety Report 19596768 (Version 1)
Quarter: 2021Q3

REPORT INFORMATION
  Report Type: Spontaneous
  Country: IR (occurrence: IR)
  Receive Date: 20210723
  Receipt Date: 20210723
  Transmission Date: 20211014
  Serious: Yes (Hospitalization, Other)
  Sender: FDA-Public Use
  Company Number: IR-SCIEGENPHARMA-2021SCILIT00572

PATIENT
  Age: 47 Year
  Sex: Male

DRUGS (4)
  1. LEVODOPA [Suspect]
     Active Substance: LEVODOPA
     Route: 065
  2. CLOZAPINE. [Interacting]
     Active Substance: CLOZAPINE
     Indication: PSYCHOTIC DISORDER
     Route: 065
  3. LEVODOPA [Suspect]
     Active Substance: LEVODOPA
     Indication: PARKINSON^S DISEASE
     Route: 065
  4. PRAMIPEXOLE DIHYDROCHLORIDE. [Suspect]
     Active Substance: PRAMIPEXOLE DIHYDROCHLORIDE
     Indication: PARKINSON^S DISEASE
     Route: 065

REACTIONS (3)
  - Conversion disorder [Unknown]
  - Inappropriate schedule of product administration [Unknown]
  - Overdose [Unknown]
